FAERS Safety Report 24258634 (Version 2)
Quarter: 2024Q3

REPORT INFORMATION
  Report Type: Spontaneous
  Country: BE (occurrence: BE)
  Receive Date: 20240828
  Receipt Date: 20240910
  Transmission Date: 20241017
  Serious: No
  Sender: PFIZER
  Company Number: BE-PFIZER INC-PV202400110414

PATIENT
  Age: 24 Year
  Sex: Male

DRUGS (3)
  1. CIBINQO [Suspect]
     Active Substance: ABROCITINIB
     Indication: Eczema
     Dosage: 200 MG, 1X/DAY
     Route: 048
     Dates: start: 20231009, end: 20240213
  2. CANNABIS SATIVA SUBSP. INDICA TOP [Suspect]
     Active Substance: CANNABIS SATIVA SUBSP. INDICA TOP
  3. OLUMIANT [Concomitant]
     Active Substance: BARICITINIB
     Indication: Dermatitis atopic
     Dosage: 4 MG, 1X/DAY

REACTIONS (3)
  - Nausea [Recovered/Resolved]
  - Panic attack [Recovered/Resolved]
  - Migraine [Recovered/Resolved]

NARRATIVE: CASE EVENT DATE: 20231009
